FAERS Safety Report 8844669 (Version 1)
Quarter: 2012Q4

REPORT INFORMATION
  Report Type: 
  Country: ES (occurrence: ES)
  Receive Date: 20121017
  Receipt Date: 20121017
  Transmission Date: 20130627
  Serious: Yes (Hospitalization)
  Sender: FDA-Public Use
  Company Number: PHHY2012ES091708

PATIENT
  Age: 37 Year
  Sex: Female

DRUGS (4)
  1. TRILEPTAL [Suspect]
     Indication: PERSONALITY DISORDER
     Dosage: 1800 mg, Daily
     Route: 048
     Dates: start: 201109, end: 20120502
  2. VENLAFAXINE [Concomitant]
     Indication: DEPRESSION
     Dosage: 150 mg, daily
     Route: 048
  3. TRANXILIUM [Concomitant]
     Indication: ANXIETY
     Dosage: 75 mg, QD
     Route: 048
     Dates: start: 2008
  4. ZYPREXA [Concomitant]
     Indication: PERSONALITY DISORDER
     Dosage: 20 mg, Daily
     Route: 048
     Dates: start: 201111, end: 20120301

REACTIONS (1)
  - Inappropriate antidiuretic hormone secretion [Recovered/Resolved]
